FAERS Safety Report 13847193 (Version 3)
Quarter: 2017Q4

REPORT INFORMATION
  Report Type: Spontaneous
  Country: US (occurrence: US)
  Receive Date: 20170808
  Receipt Date: 20171123
  Transmission Date: 20180320
  Serious: Yes (Death, Hospitalization, Other)
  Sender: FDA-Public Use
  Company Number: US-009507513-1708USA003550

PATIENT
  Age: 61 Year
  Sex: Male

DRUGS (6)
  1. AMIODARONE [Suspect]
     Active Substance: AMIODARONE
     Indication: HYPOTENSION
     Dosage: INFUSION AT 1 MG/MINUTE
     Route: 042
  2. BIVALIRUDIN. [Suspect]
     Active Substance: BIVALIRUDIN
     Indication: CORONARY ARTERY STENOSIS
     Dosage: 0.75 MG/KG, BOLUS
     Route: 042
  3. AMIODARONE [Suspect]
     Active Substance: AMIODARONE
     Indication: VENTRICULAR TACHYCARDIA
     Dosage: 150 MG, ONCE
     Route: 042
  4. ASPIRIN. [Concomitant]
     Active Substance: ASPIRIN
     Indication: ACUTE MYOCARDIAL INFARCTION
     Dosage: 325 MG, UNK
     Route: 045
  5. BIVALIRUDIN. [Suspect]
     Active Substance: BIVALIRUDIN
     Dosage: INFUSION AT 1.75 MG/KG/HOUR
     Route: 042
  6. INTEGRILIN [Suspect]
     Active Substance: EPTIFIBATIDE
     Indication: CORONARY ARTERY STENOSIS
     Dosage: 180 MICROGRAM/KG, SINGLE BOLUS (STANDARD DOSE)
     Route: 042

REACTIONS (1)
  - Pulmonary alveolar haemorrhage [Fatal]
